FAERS Safety Report 15946639 (Version 1)
Quarter: 2019Q1

REPORT INFORMATION
  Report Type: Spontaneous
  Country: US (occurrence: US)
  Receive Date: 20190212
  Receipt Date: 20190212
  Transmission Date: 20190417
  Serious: Yes (Hospitalization)
  Sender: FDA-Public Use
  Company Number: None

PATIENT
  Sex: Female

DRUGS (7)
  1. SINGULAIR, ZINC 15 [Concomitant]
  2. ROBINUL, SIMVASTATIN [Concomitant]
  3. ELIQUIS, FLONASE, FUROSEMIDE [Concomitant]
  4. GLIPIZIDE, IRON, MAGNESIUM [Concomitant]
  5. XOLAIR [Suspect]
     Active Substance: OMALIZUMAB
     Indication: ASTHMA
     Dosage: ?          OTHER FREQUENCY:Q 2 WEEKS;?
     Route: 058
     Dates: start: 20100819
  6. BENEFIBER, BISOPROL, COLACE [Concomitant]
  7. METOLAZONE, MIRALAX, POTASSIUM [Concomitant]

REACTIONS (1)
  - Hospitalisation [None]
